FAERS Safety Report 6064027-9 (Version None)
Quarter: 2009Q1

REPORT INFORMATION
  Report Type: 
  Country: None (occurrence: None)
  Receive Date: 20090203
  Receipt Date: 20090203
  Transmission Date: 20090719
  Serious: Yes (Hospitalization)
  Sender: FDA-Public Use
  Company Number: None

PATIENT
  Sex: Female
  Weight: 75.45 kg

DRUGS (13)
  1. HYDROCHLOROTHIAZIDE [Suspect]
     Dosage: 25MG QD ORAL
     Route: 048
     Dates: start: 20090115, end: 20090202
  2. AEROCHAMBER [Concomitant]
  3. ALBUTEROL [Concomitant]
  4. COMBIVENT (IPRATROPIUM AND ALBUTEROL SULFATE) [Concomitant]
  5. DIVALPROEX SODIUM [Concomitant]
  6. FLOVENT [Concomitant]
  7. LISINOPRIL [Concomitant]
  8. NAFTIN [Concomitant]
  9. OMEPRAZOLE [Concomitant]
  10. PERCOCET [Concomitant]
  11. ACETAMINOPHEN [Concomitant]
  12. RISPERDAL [Concomitant]
  13. SERAX [Concomitant]

REACTIONS (1)
  - HYPONATRAEMIA [None]
